FAERS Safety Report 7525208-8 (Version None)
Quarter: 2011Q2

REPORT INFORMATION
  Report Type: 
  Country: None (occurrence: None)
  Receive Date: 20110526
  Receipt Date: 20110511
  Transmission Date: 20111010
  Serious: Yes (Death, Other)
  Sender: FDA-Public Use
  Company Number: DK-2011-1103

PATIENT
  Sex: Female

DRUGS (1)
  1. VINORELBINE [Suspect]
     Indication: BREAST CANCER

REACTIONS (2)
  - CARDIAC FAILURE CONGESTIVE [None]
  - LUNG INFECTION [None]
